FAERS Safety Report 4892588-1 (Version None)
Quarter: 2006Q1

REPORT INFORMATION
  Report Type: 
  Country: None (occurrence: None)
  Receive Date: 20060126
  Receipt Date: 20051107
  Transmission Date: 20060701
  Serious: Yes (Hospitalization)
  Sender: FDA-Public Use
  Company Number: US-ROCHE-424159

PATIENT
  Age: 48 Year
  Sex: Male
  Weight: 80.7 kg

DRUGS (4)
  1. PEGASYS [Suspect]
     Indication: HEPATITIS C
     Route: 058
     Dates: start: 20050407, end: 20050907
  2. COPEGUS [Suspect]
     Indication: HEPATITIS C
     Route: 048
     Dates: start: 20050407, end: 20050907
  3. ZOLOFT [Concomitant]
     Indication: DEPRESSION
     Dosage: FREQUENCY: DAILY.
     Route: 048
     Dates: start: 20050420
  4. NEXIUM [Concomitant]
     Dosage: FREQUENCY: DAILY.
     Route: 048
     Dates: start: 20050420

REACTIONS (12)
  - ARTHRALGIA [None]
  - DEPRESSION [None]
  - DIABETES MELLITUS [None]
  - DIZZINESS [None]
  - FATIGUE [None]
  - HEPATOMEGALY [None]
  - NAUSEA [None]
  - PANCREATITIS [None]
  - RASH [None]
  - RENAL CYST [None]
  - SKIN ULCER [None]
  - STOMACH DISCOMFORT [None]
